FAERS Safety Report 8986371 (Version 3)
Quarter: 2013Q1

REPORT INFORMATION
  Report Type: Spontaneous
  Country: US (occurrence: US)
  Receive Date: 20121227
  Receipt Date: 20130313
  Transmission Date: 20140127
  Serious: Yes (Other)
  Sender: FDA-Public Use
  Company Number: US-ELI_LILLY_AND_COMPANY-US201212005985

PATIENT
  Sex: Female
  Weight: 94.3 kg

DRUGS (25)
  1. FORTEO [Suspect]
     Indication: OSTEOPOROSIS
     Dosage: 20 UG, QD
     Dates: start: 20121018
  2. OXYBUTIN [Concomitant]
  3. PLAQUENIL [Concomitant]
  4. OMEPRAZOLE [Concomitant]
  5. PREDNISONE [Concomitant]
  6. CITALOPRAM [Concomitant]
  7. VERAPAMIL [Concomitant]
  8. GABAPENTIN [Concomitant]
  9. METFORMIN [Concomitant]
  10. TOPIRAMATE [Concomitant]
  11. FLEXERIL [Concomitant]
  12. PHENERGAN [Concomitant]
  13. FERROUS SULFATE [Concomitant]
  14. HYDROCODONE [Concomitant]
  15. AMITRIPTYLINE [Concomitant]
  16. INDOMETHACIN [Concomitant]
  17. ZANAFLEX [Concomitant]
  18. ECOTRIN [Concomitant]
  19. VITAMIN D3 [Concomitant]
  20. SUPER B COMPLEX [Concomitant]
  21. MAGNESIUM [Concomitant]
  22. OMEGA 3 FISH OIL [Concomitant]
  23. WOMEN^S MULTI [Concomitant]
  24. SENOKOT [Concomitant]
  25. VITAMIN E [Concomitant]

REACTIONS (1)
  - Breast cancer [Unknown]
